FAERS Safety Report 21830637 (Version 1)
Quarter: 2023Q1

REPORT INFORMATION
  Report Type: Spontaneous
  Country: US (occurrence: US)
  Receive Date: 20230106
  Receipt Date: 20230106
  Transmission Date: 20230418
  Serious: Yes (Death)
  Sender: FDA-Public Use
  Company Number: US-PFIZER INC-PV202200133859

PATIENT
  Age: 35 Year
  Sex: Male

DRUGS (2)
  1. VORICONAZOLE [Suspect]
     Active Substance: VORICONAZOLE
     Indication: Infection
     Dosage: UNK
  2. AMPHOTERICIN B [Suspect]
     Active Substance: AMPHOTERICIN B
     Indication: Infection
     Dosage: UNK
     Route: 042

REACTIONS (3)
  - Drug ineffective for unapproved indication [Fatal]
  - Off label use [Fatal]
  - Multiple organ dysfunction syndrome [Fatal]
